FAERS Safety Report 23045836 (Version 10)
Quarter: 2024Q1

REPORT INFORMATION
  Report Type: Report from Study
  Country: GB (occurrence: GB)
  Receive Date: 20231009
  Receipt Date: 20240117
  Transmission Date: 20240410
  Serious: Yes (Hospitalization, Other)
  Sender: FDA-Public Use
  Company Number: None

PATIENT
  Age: 59 Year
  Weight: 51 kg

DRUGS (7)
  1. LENALIDOMIDE [Suspect]
     Active Substance: LENALIDOMIDE
     Indication: Follicular lymphoma
     Dosage: ONCE DAILY FOR 1 - 21 DAYS. ON 26/MAR/2023 LAST DOSE OF DRUG ADMINISTERED PRIOR TO NEUTROPENIA.
     Route: 048
     Dates: start: 20220929, end: 20230326
  2. OBINUTUZUMAB [Suspect]
     Active Substance: OBINUTUZUMAB
     Indication: Follicular lymphoma
     Dosage: 1 CYCLE, ON 17/JUN/2022, THE PATIENT RECEIVED LAST DOSE OF STUDY DRUG.
     Route: 042
     Dates: start: 20211111, end: 20220617
  3. FILGRASTIM [Suspect]
     Active Substance: FILGRASTIM
     Indication: Product used for unknown indication
     Dosage: 300 MCG SINGLE 1 DAYS
     Route: 058
     Dates: start: 20230328
  4. PIPERACILLIN SODIUM\TAZOBACTAM SODIUM [Concomitant]
     Active Substance: PIPERACILLIN SODIUM\TAZOBACTAM SODIUM
     Indication: Product used for unknown indication
     Dosage: 4.5 G
     Route: 042
     Dates: start: 20220820
  5. PREDNISONE [Suspect]
     Active Substance: PREDNISONE
     Indication: Follicular lymphoma
     Dosage: ON 17/JUN/2022, THE PATIENT RECEIVED LAST DOSE OF STUDY DRUG.; ;
     Route: 065
     Dates: start: 20211111, end: 20220617
  6. VINCRISTINE [Suspect]
     Active Substance: VINCRISTINE
     Indication: Follicular lymphoma
     Dosage: ON 17/JUN/2022, THE PATIENT RECEIVED LAST DOSE OF STUDY DRUG; ;
     Route: 065
     Dates: start: 20211111, end: 20220617
  7. CYCLOPHOSPHAMIDE [Suspect]
     Active Substance: CYCLOPHOSPHAMIDE
     Indication: Follicular lymphoma
     Dosage: ON 17/JUN/2022, THE PATIENT RECEIVED LAST DOSE OF STUDY DRUG; ;
     Route: 065
     Dates: start: 20211111, end: 20220617

REACTIONS (7)
  - Neutropenic sepsis [Recovering/Resolving]
  - Malaise [Unknown]
  - Lethargy [Unknown]
  - C-reactive protein increased [Unknown]
  - Neutropenia [Recovering/Resolving]
  - COVID-19 [Recovered/Resolved]
  - Pneumonia [Unknown]

NARRATIVE: CASE EVENT DATE: 20220820
